FAERS Safety Report 4329127-X (Version None)
Quarter: 2004Q1

REPORT INFORMATION
  Report Type: 
  Country: None (occurrence: None)
  Receive Date: 20040329
  Receipt Date: 20031222
  Transmission Date: 20041129
  Serious: No
  Sender: FDA-Public Use
  Company Number: 03P-163-0245331-00

PATIENT
  Age: 62 Year
  Sex: Female
  Weight: 68.0396 kg

DRUGS (12)
  1. HUMIRA [Suspect]
     Indication: THYROIDITIS FIBROUS CHRONIC
     Dosage: 40 MG, 1 IN 2 WK, SUBCUTANEOUS
     Route: 058
     Dates: start: 20031209
  2. DIOVAN [Concomitant]
  3. PREMA [Concomitant]
  4. LANSOPRAZOLE [Concomitant]
  5. FOLIC ACID [Concomitant]
  6. LUCOVON [Concomitant]
  7. HYDROCODONE [Concomitant]
  8. CALCIUM [Concomitant]
  9. ASPIRIN [Concomitant]
  10. CALCIUM CARBONATE [Concomitant]
  11. TOCOPHEROL CONCENTRATE CAP [Concomitant]
  12. TOPROL-XL [Concomitant]

REACTIONS (1)
  - INJECTION SITE PAIN [None]
